FAERS Safety Report 6141530-4 (Version None)
Quarter: 2009Q2

REPORT INFORMATION
  Report Type: 
  Country: None (occurrence: None)
  Receive Date: 20090401
  Receipt Date: 20090401
  Transmission Date: 20091009
  Serious: Yes (Other)
  Sender: FDA-Public Use
  Company Number: None

PATIENT
  Age: 26 Year
  Sex: Female
  Weight: 47.6277 kg

DRUGS (1)
  1. YAZ [Suspect]

REACTIONS (4)
  - DEPRESSION [None]
  - FEELING ABNORMAL [None]
  - PANIC REACTION [None]
  - SUICIDAL IDEATION [None]
